FAERS Safety Report 8025996-0 (Version None)
Quarter: 2012Q1

REPORT INFORMATION
  Report Type: 
  Country: None (occurrence: None)
  Receive Date: 20120105
  Receipt Date: 20110916
  Transmission Date: 20120608
  Serious: No
  Sender: FDA-Public Use
  Company Number: US-ABBOTT-11P-163-0856090-00

PATIENT
  Age: 64 Year
  Sex: Female
  Weight: 55.842 kg

DRUGS (7)
  1. VAGIFEM [Concomitant]
     Indication: PRODUCT USED FOR UNKNOWN INDICATION
  2. SYNTHROID [Suspect]
     Dates: start: 20110901
  3. NEXIUM [Concomitant]
     Indication: PRODUCT USED FOR UNKNOWN INDICATION
  4. SYNTHROID [Suspect]
     Dates: start: 19890101, end: 20110901
  5. CARDIZEM LA [Concomitant]
     Indication: PRODUCT USED FOR UNKNOWN INDICATION
  6. SYNTHROID [Suspect]
     Indication: HYPOTHYROIDISM
     Dosage: 6 DAYS PER WEEK
     Dates: start: 19890101, end: 20110901
  7. FLOVENT [Concomitant]
     Indication: PRODUCT USED FOR UNKNOWN INDICATION

REACTIONS (1)
  - BLOOD THYROID STIMULATING HORMONE INCREASED [None]
